FAERS Safety Report 8159586-6 (Version None)
Quarter: 2012Q1

REPORT INFORMATION
  Report Type: 
  Country: None (occurrence: None)
  Receive Date: 20120223
  Receipt Date: 20120213
  Transmission Date: 20120608
  Serious: Yes (Hospitalization)
  Sender: FDA-Public Use
  Company Number: CA-ROCHE-1040219

PATIENT
  Sex: Male
  Weight: 83.99 kg

DRUGS (11)
  1. MULTI-VITAMIN [Concomitant]
  2. IRON [Concomitant]
  3. FOLIC ACID [Concomitant]
  4. ACETAMINOPHEN [Concomitant]
     Indication: PREMEDICATION
     Route: 048
     Dates: start: 20111013, end: 20111013
  5. SOLU-CORTEF [Concomitant]
     Indication: PREMEDICATION
     Route: 042
     Dates: start: 20111013, end: 20111013
  6. PREDNISONE TAB [Concomitant]
  7. METHOTREXATE [Concomitant]
  8. PROZAC [Concomitant]
  9. DIPHENHYDRAMINE HCL [Concomitant]
     Indication: PREMEDICATION
     Route: 048
     Dates: start: 20111013, end: 20111013
  10. MABTHERA [Suspect]
     Indication: MICROSCOPIC POLYANGIITIS
     Route: 042
     Dates: start: 20110929
  11. SYMBICORT [Concomitant]

REACTIONS (1)
  - PULMONARY HAEMORRHAGE [None]
